FAERS Safety Report 13726542 (Version 1)
Quarter: 2017Q3

REPORT INFORMATION
  Report Type: Spontaneous
  Country: FR (occurrence: FR)
  Receive Date: 20170707
  Receipt Date: 20170707
  Transmission Date: 20171127
  Serious: Yes (Life-Threatening)
  Sender: FDA-Public Use
  Company Number: FR-PFIZER INC-2017291587

PATIENT
  Age: 38 Year
  Sex: Male

DRUGS (3)
  1. ATRACURIUM BESILATE [Suspect]
     Active Substance: ATRACURIUM BESYLATE
     Dosage: 30 MG, SINGLE
     Route: 042
     Dates: start: 20170621, end: 20170621
  2. ATRACURIUM BESILATE [Suspect]
     Active Substance: ATRACURIUM BESYLATE
     Indication: SPINAL FUSION SURGERY
     Dosage: 50 MG, SINGLE
     Route: 042
     Dates: start: 20170621, end: 20170621
  3. ATRACURIUM BESILATE [Suspect]
     Active Substance: ATRACURIUM BESYLATE
     Dosage: 30 MG, SINGLE
     Route: 042
     Dates: start: 20170621, end: 20170621

REACTIONS (3)
  - Respiratory arrest [Recovered/Resolved]
  - Bradycardia [Recovered/Resolved]
  - Recurrence of neuromuscular blockade [Recovered/Resolved]

NARRATIVE: CASE EVENT DATE: 20170622
